FAERS Safety Report 24171609 (Version 3)
Quarter: 2024Q3

REPORT INFORMATION
  Report Type: Spontaneous
  Country: JP (occurrence: JP)
  Receive Date: 20240805
  Receipt Date: 20240908
  Transmission Date: 20241016
  Serious: Yes (Hospitalization, Other)
  Sender: SANOFI AVENTIS
  Company Number: JP-SA-2024SA139777

PATIENT
  Age: 68 Year
  Sex: Male
  Weight: 63.3 kg

DRUGS (14)
  1. KEVZARA [Suspect]
     Active Substance: SARILUMAB
     Indication: Rheumatoid arthritis
     Dosage: 200 MG, QOW
     Route: 058
     Dates: start: 20240502, end: 20240508
  2. PREDNISOLONE [Suspect]
     Active Substance: PREDNISOLONE
     Indication: Rheumatoid arthritis
     Dosage: 4 MG, BID
     Route: 048
     Dates: start: 20201113
  3. PREDNISOLONE [Suspect]
     Active Substance: PREDNISOLONE
     Indication: Interstitial lung disease
     Dosage: DOSE INCREASED
     Route: 048
  4. NOVORAPID [Concomitant]
     Active Substance: INSULIN ASPART
     Indication: Steroid diabetes
     Dosage: 4 UNITS IN THE MORNING, 14 UNITS AT NOON, 8 UNITS IN THE EVENING, TID, SELF-ADJUSTMENT POSSIBLE
     Route: 058
     Dates: start: 20240507
  5. TRESIBA [Concomitant]
     Active Substance: INSULIN DEGLUDEC
     Indication: Steroid diabetes
     Dosage: 6 UNITS ONCE DAILY, HS
     Route: 058
     Dates: start: 20240507
  6. CALONAL [Concomitant]
     Active Substance: ACETAMINOPHEN
     Indication: Product used for unknown indication
     Dosage: WHEN PAIN OCCURS (AS NEEDED)
     Route: 048
     Dates: start: 20240507
  7. LOXOPROFEN SODIUM [Concomitant]
     Active Substance: LOXOPROFEN SODIUM
     Indication: Rheumatoid arthritis
     Dosage: 180 MG, TID
     Route: 048
     Dates: start: 20190708
  8. SITAGLIPTIN [Concomitant]
     Active Substance: SITAGLIPTIN
     Indication: Steroid diabetes
     Dosage: 50 MG, QD
     Route: 048
     Dates: start: 20210729
  9. ASPIRIN [Concomitant]
     Active Substance: ASPIRIN
     Indication: Myocardial infarction
     Dosage: 100 MG, QD
     Route: 048
     Dates: start: 20210729
  10. ENALAPRIL [Concomitant]
     Active Substance: ENALAPRIL
     Indication: Myocardial infarction
     Dosage: 5 MG, QD
     Route: 048
     Dates: start: 20210729
  11. CARVEDILOL [Concomitant]
     Active Substance: CARVEDILOL
     Indication: Myocardial infarction
     Dosage: 10 MG, QD
     Route: 048
     Dates: start: 20210729
  12. TACROLIMUS [Concomitant]
     Active Substance: TACROLIMUS
     Indication: Myocardial infarction
     Dosage: 15 MG, QD
     Route: 048
     Dates: start: 20210729
  13. ATORVASTATIN CALCIUM\EZETIMIBE [Concomitant]
     Active Substance: ATORVASTATIN CALCIUM\EZETIMIBE
     Indication: Myocardial infarction
     Dosage: LD, QD
     Route: 048
     Dates: start: 20210729
  14. LOXOPROFEN SODIUM [Concomitant]
     Active Substance: LOXOPROFEN SODIUM
     Indication: Rheumatoid arthritis
     Dosage: 100 UNK
     Route: 061
     Dates: start: 20190708

REACTIONS (2)
  - Interstitial lung disease [Recovering/Resolving]
  - Cellulitis [Recovered/Resolved]

NARRATIVE: CASE EVENT DATE: 20240508
